FAERS Safety Report 6906378-9 (Version None)
Quarter: 2010Q3

REPORT INFORMATION
  Report Type: 
  Country: None (occurrence: None)
  Receive Date: 20100804
  Receipt Date: 20100720
  Transmission Date: 20110219
  Serious: Yes (Other)
  Sender: FDA-Public Use
  Company Number: A0873569A

PATIENT
  Sex: Male

DRUGS (1)
  1. AVANDAMET [Suspect]
     Indication: PRODUCT USED FOR UNKNOWN INDICATION

REACTIONS (5)
  - ARTHRALGIA [None]
  - CEREBROVASCULAR ACCIDENT [None]
  - DIZZINESS [None]
  - DYSPNOEA [None]
  - TREATMENT NONCOMPLIANCE [None]
